FAERS Safety Report 6542917-8 (Version None)
Quarter: 2010Q1

REPORT INFORMATION
  Report Type: 
  Country: None (occurrence: None)
  Receive Date: 20100120
  Receipt Date: 20080926
  Transmission Date: 20100710
  Serious: Yes (Disabling)
  Sender: FDA-Public Use
  Company Number: BR-BAYER-200816761LA

PATIENT
  Age: 40 Year
  Sex: Female

DRUGS (1)
  1. BETAFERON [Suspect]
     Indication: MULTIPLE SCLEROSIS
     Dosage: TOTAL DAILY DOSE: 8 MIU
     Route: 058
     Dates: start: 20080718, end: 20080901

REACTIONS (9)
  - COUGH [None]
  - HEADACHE [None]
  - HYPOAESTHESIA [None]
  - LIMB DISCOMFORT [None]
  - MOVEMENT DISORDER [None]
  - PAIN [None]
  - RENAL PAIN [None]
  - SPEECH DISORDER [None]
  - THOUGHT BLOCKING [None]
